FAERS Safety Report 4346393-5 (Version None)
Quarter: 2004Q2

REPORT INFORMATION
  Report Type: 
  Country: None (occurrence: None)
  Receive Date: 20040426
  Receipt Date: 20031104
  Transmission Date: 20050107
  Serious: No
  Sender: FDA-Public Use
  Company Number: US-GLAXOSMITHKLINE-A0439296A

PATIENT
  Age: 65 Year
  Sex: Female

DRUGS (2)
  1. ZOFRAN [Suspect]
     Indication: VOMITING
     Route: 048
     Dates: start: 20031023
  2. COMPAZINE [Concomitant]

REACTIONS (1)
  - DRUG INEFFECTIVE [None]
